FAERS Safety Report 12659750 (Version 1)
Quarter: 2016Q3

REPORT INFORMATION
  Report Type: Report from Study
  Country: CO (occurrence: CO)
  Receive Date: 20160817
  Receipt Date: 20160817
  Transmission Date: 20161109
  Serious: No
  Sender: FDA-Public Use
  Company Number: PHHY2015CO146042

PATIENT
  Age: 32 Year
  Sex: Female
  Weight: 61 kg

DRUGS (1)
  1. TASIGNA [Suspect]
     Active Substance: NILOTINIB
     Indication: CHRONIC MYELOID LEUKAEMIA
     Dosage: 200 MG, QID (FOUR TIMES A DAY)
     Route: 048
     Dates: start: 20151023

REACTIONS (7)
  - Oropharyngeal pain [Recovered/Resolved]
  - Feeling abnormal [Recovering/Resolving]
  - Incorrect drug administration duration [Unknown]
  - Tonsillar inflammation [Recovered/Resolved]
  - Nausea [Unknown]
  - Headache [Unknown]
  - Abdominal pain upper [Unknown]

NARRATIVE: CASE EVENT DATE: 20160809
